FAERS Safety Report 17547014 (Version 3)
Quarter: 2020Q1

REPORT INFORMATION
  Report Type: Spontaneous
  Country: FR (occurrence: FR)
  Receive Date: 20200316
  Receipt Date: 20200318
  Transmission Date: 20200409
  Serious: Yes (Death, Other)
  Sender: FDA-Public Use
  Company Number: FR-PFIZER INC-2020110263

PATIENT
  Age: 5 Year
  Sex: Female
  Weight: 22.8 kg

DRUGS (4)
  1. KEPPRA [Concomitant]
     Active Substance: LEVETIRACETAM
     Indication: MYOCLONUS
     Dosage: 1000 MG, 1X/DAY
     Route: 048
  2. LORVIQUA [Suspect]
     Active Substance: LORLATINIB
     Indication: ANAPLASTIC LARGE-CELL LYMPHOMA
     Dosage: 50 MG, 1X/DAY
     Route: 048
     Dates: start: 20191121, end: 20200221
  3. CRESEMBA [Suspect]
     Active Substance: ISAVUCONAZONIUM SULFATE
     Indication: PULMONARY MUCORMYCOSIS
     Dosage: 200 MG, 1X/DAY
     Route: 048
     Dates: start: 20191121, end: 20200221
  4. BACTRIM [Concomitant]
     Active Substance: SULFAMETHOXAZOLE\TRIMETHOPRIM
     Indication: PROPHYLAXIS
     Dosage: 1800 MG, WEEKLY
     Route: 048

REACTIONS (8)
  - Polydipsia [Fatal]
  - Hyperkalaemia [Fatal]
  - Product administered to patient of inappropriate age [Fatal]
  - Cardio-respiratory arrest [Fatal]
  - Off label use [Fatal]
  - Abdominal pain [Fatal]
  - Diabetic ketoacidosis [Fatal]
  - Cardiac arrest [Fatal]

NARRATIVE: CASE EVENT DATE: 20191121
